FAERS Safety Report 5128682-X (Version None)
Quarter: 2006Q4

REPORT INFORMATION
  Report Type: 
  Country: None (occurrence: None)
  Receive Date: 20061017
  Receipt Date: 20061005
  Transmission Date: 20070319
  Serious: Yes (Hospitalization)
  Sender: FDA-Public Use
  Company Number: 2006SE05349

PATIENT
  Age: 84 Year
  Sex: Male

DRUGS (8)
  1. BLOPRESS [Suspect]
     Indication: CARDIAC FAILURE CHRONIC
     Route: 048
     Dates: start: 20050419, end: 20051001
  2. BLOPRESS [Suspect]
     Route: 048
     Dates: start: 20051101, end: 20060314
  3. WARFARIN SODIUM [Concomitant]
     Route: 048
  4. HALFDIGOXIN-KY [Concomitant]
     Route: 048
  5. LASIX [Concomitant]
     Route: 065
  6. ALDACTONE [Concomitant]
     Route: 048
  7. RENIVACE [Concomitant]
     Route: 048
  8. TANATRIL [Concomitant]
     Route: 048

REACTIONS (2)
  - CARDIAC FAILURE [None]
  - DERMATITIS EXFOLIATIVE [None]
